FAERS Safety Report 25856681 (Version 1)
Quarter: 2025Q3

REPORT INFORMATION
  Report Type: Spontaneous
  Country: JP (occurrence: JP)
  Receive Date: 20250929
  Receipt Date: 20250929
  Transmission Date: 20251020
  Serious: Yes (Other)
  Sender: TAKEDA
  Company Number: JP-TAKEDA-2025TJP009678

PATIENT
  Age: 77 Year
  Sex: Male

DRUGS (1)
  1. OBIZUR [Suspect]
     Active Substance: SUSOCTOCOG ALFA
     Indication: Haemostasis

REACTIONS (2)
  - Drug ineffective [Unknown]
  - No adverse event [Unknown]
